FAERS Safety Report 9517226 (Version 2)
Quarter: 2013Q3

REPORT INFORMATION
  Report Type: Report from Study
  Country: DE (occurrence: DE)
  Receive Date: 20130911
  Receipt Date: 20130911
  Transmission Date: 20140515
  Serious: Yes (Hospitalization)
  Sender: FDA-Public Use
  Company Number: PHHO2008DE04482

PATIENT
  Age: 69 Year
  Sex: Female
  Weight: 83 kg

DRUGS (4)
  1. EVEROLIMUS [Suspect]
     Indication: BREAST CANCER METASTATIC
     Route: 048
     Dates: start: 20080313, end: 20080405
  2. INSULIN [Suspect]
  3. DIABESIN [Concomitant]
     Indication: DIABETES MELLITUS
  4. METAMIZOLE [Concomitant]
     Indication: PAIN

REACTIONS (3)
  - Diabetes mellitus inadequate control [Recovered/Resolved]
  - Hyperglycaemia [Not Recovered/Not Resolved]
  - Cystitis [Recovered/Resolved]
